FAERS Safety Report 16908206 (Version 1)
Quarter: 2019Q4

REPORT INFORMATION
  Report Type: Spontaneous
  Country: MX (occurrence: MX)
  Receive Date: 20191010
  Receipt Date: 20191010
  Transmission Date: 20200122
  Serious: Yes (Hospitalization)
  Sender: FDA-Public Use
  Company Number: None

PATIENT
  Age: 44 Year
  Sex: Female

DRUGS (1)
  1. ALIREN [Suspect]
     Active Substance: ACETAMINOPHEN\AMANTADINE\CHLORPHENIRAMINE

REACTIONS (6)
  - Disorientation [None]
  - Influenza [None]
  - Dizziness [None]
  - Feeling abnormal [None]
  - Paraesthesia [None]
  - Arrhythmia [None]

NARRATIVE: CASE EVENT DATE: 20191010
